FAERS Safety Report 16440152 (Version 2)
Quarter: 2019Q2

REPORT INFORMATION
  Report Type: Spontaneous
  Country: US (occurrence: US)
  Receive Date: 20190617
  Receipt Date: 20190626
  Transmission Date: 20190711
  Serious: No
  Sender: FDA-Public Use
  Company Number: US-GLAXOSMITHKLINE-US2019103289

PATIENT
  Sex: Female

DRUGS (3)
  1. FAMCICLOVIR. [Suspect]
     Active Substance: FAMCICLOVIR
     Indication: PRODUCT USED FOR UNKNOWN INDICATION
     Dosage: UNK
  2. ACYCLOVIR. [Suspect]
     Active Substance: ACYCLOVIR
     Indication: PRODUCT USED FOR UNKNOWN INDICATION
     Dosage: UNK
     Route: 065
     Dates: start: 201403
  3. VALACYCLOVIR [Suspect]
     Active Substance: VALACYCLOVIR HYDROCHLORIDE
     Indication: PRODUCT USED FOR UNKNOWN INDICATION
     Dosage: UNK
     Route: 065
     Dates: start: 20140929

REACTIONS (12)
  - Thinking abnormal [Unknown]
  - Nightmare [Unknown]
  - Drug ineffective [Unknown]
  - Diarrhoea [Unknown]
  - Feeling abnormal [Unknown]
  - Herpes virus infection [Unknown]
  - Dizziness [Unknown]
  - Somnolence [Unknown]
  - Pruritus [Unknown]
  - Rash pustular [Unknown]
  - Adverse drug reaction [Unknown]
  - Condition aggravated [Unknown]
